FAERS Safety Report 23637356 (Version 2)
Quarter: 2024Q1

REPORT INFORMATION
  Report Type: Report from Study
  Country: BE (occurrence: BE)
  Receive Date: 20240315
  Receipt Date: 20240328
  Transmission Date: 20240410
  Serious: Yes (Hospitalization, Other)
  Sender: FDA-Public Use
  Company Number: BE-JAZZ PHARMACEUTICALS-2024-BE-004485

PATIENT

DRUGS (19)
  1. LURBINECTEDIN [Suspect]
     Active Substance: LURBINECTEDIN
     Indication: Small cell lung cancer
     Dosage: 3.2 MILLIGRAM/SQ. METER, D1Q3W
     Route: 042
     Dates: start: 20230818, end: 20240216
  2. PANTOPRAZOLE SODIUM [Concomitant]
     Active Substance: PANTOPRAZOLE SODIUM
     Indication: Dyspepsia
     Dosage: 40 MILLIGRAM, QD
     Route: 048
     Dates: start: 20230401
  3. DEXAMETHASONE [Concomitant]
     Active Substance: DEXAMETHASONE
     Indication: Prophylaxis
     Dosage: 8 MILLIGRAM
     Route: 048
     Dates: start: 20230819, end: 20240310
  4. DEXAMETHASONE [Concomitant]
     Active Substance: DEXAMETHASONE
     Indication: Prophylaxis of nausea and vomiting
     Dosage: 8 MILLIGRAM
     Route: 042
     Dates: start: 20240216, end: 20240216
  5. LERCANIDIPINE [Concomitant]
     Active Substance: LERCANIDIPINE
     Indication: Hypertension
     Dosage: 10 MILLIGRAM, PRN
     Route: 048
     Dates: start: 20230826
  6. FENOTEROL HYDROBROMIDE [Concomitant]
     Active Substance: FENOTEROL HYDROBROMIDE
     Indication: Dyspnoea
     Dosage: 1 DOSAGE FORM, PRN, RESPIRATORY
     Dates: start: 20230828
  7. SODIUM BICARBONATE [Concomitant]
     Active Substance: SODIUM BICARBONATE
     Indication: Stomatitis
     Dosage: 1 DOSAGE FORM, PRN
     Route: 048
     Dates: start: 20231024
  8. DAFALGAN [Concomitant]
     Active Substance: ACETAMINOPHEN
     Indication: Back pain
     Dosage: 1 GRAM, PRN
     Route: 048
     Dates: start: 20240104
  9. ENOXAPARIN SODIUM [Concomitant]
     Active Substance: ENOXAPARIN SODIUM
     Indication: Cardiovascular disorder
     Dosage: 40 MILLIGRAM, QD
     Route: 058
     Dates: start: 20240208, end: 20240213
  10. ALIZAPRIDE HYDROCHLORIDE [Concomitant]
     Active Substance: ALIZAPRIDE HYDROCHLORIDE
     Indication: Intestinal obstruction
     Dosage: 50 MILLIGRAM, PRN
     Route: 042
     Dates: start: 20240208, end: 20240212
  11. SOLU-MEDROL [Concomitant]
     Active Substance: METHYLPREDNISOLONE SODIUM SUCCINATE
     Indication: Intestinal obstruction
     Dosage: 250 MILLIGRAM, QD
     Route: 042
     Dates: start: 20240208, end: 20240211
  12. SOLU-MEDROL [Concomitant]
     Active Substance: METHYLPREDNISOLONE SODIUM SUCCINATE
     Dosage: 125 MILLIGRAM, QD
     Route: 042
     Dates: start: 20240212
  13. TRAMADOL HYDROCHLORIDE [Concomitant]
     Active Substance: TRAMADOL HYDROCHLORIDE
     Indication: Intestinal obstruction
     Dosage: 100 MILLIGRAM, QD
     Route: 042
     Dates: start: 20240208, end: 20240210
  14. ZOLPIDEM TARTRATE [Concomitant]
     Active Substance: ZOLPIDEM TARTRATE
     Indication: Insomnia
     Dosage: 10 MILLIGRAM, QD
     Route: 048
     Dates: start: 20240211, end: 20240304
  15. ZOLPIDEM TARTRATE [Concomitant]
     Active Substance: ZOLPIDEM TARTRATE
     Dosage: 10 MILLIGRAM, PRN
     Route: 048
     Dates: start: 20240305
  16. MEDROL [Concomitant]
     Active Substance: METHYLPREDNISOLONE
     Indication: Steroid therapy
     Dosage: 32 MILLIGRAM, QD
     Route: 048
     Dates: start: 20240213, end: 20240216
  17. MEDROL [Concomitant]
     Active Substance: METHYLPREDNISOLONE
     Indication: Intestinal obstruction
     Dosage: UNK
     Route: 048
     Dates: start: 20240217, end: 20240220
  18. MEDROL [Concomitant]
     Active Substance: METHYLPREDNISOLONE
     Dosage: 8 MILLIGRAM, QD
     Route: 048
     Dates: start: 20240221, end: 20240224
  19. ONDANSETRON [Concomitant]
     Active Substance: ONDANSETRON
     Indication: Prophylaxis of nausea and vomiting
     Dosage: 8 MILLIGRAM
     Route: 042
     Dates: start: 20240216, end: 20240216

REACTIONS (2)
  - Small intestinal obstruction [Recovered/Resolved]
  - Pneumonia [Recovered/Resolved]

NARRATIVE: CASE EVENT DATE: 20240225
